FAERS Safety Report 15267344 (Version 1)
Quarter: 2018Q3

REPORT INFORMATION
  Report Type: Spontaneous
  Country: US (occurrence: US)
  Receive Date: 20180724
  Receipt Date: 20180724
  Transmission Date: 20181010
  Serious: Yes (Life-Threatening)
  Sender: FDA-Public Use
  Company Number: None

PATIENT
  Age: 61 Year
  Sex: Female
  Weight: 108 kg

DRUGS (7)
  1. LOSARTIN [Suspect]
     Active Substance: LOSARTAN
     Indication: HYPERTENSION
     Dosage: ?          QUANTITY:1 TABLET(S);?
     Route: 048
     Dates: start: 20161128, end: 20180625
  2. VITAMIN D3 [Concomitant]
     Active Substance: CHOLECALCIFEROL
  3. XANEX [Concomitant]
  4. FISH OIL [Concomitant]
     Active Substance: FISH OIL
  5. CLARITIN OVT WITH NO D [Concomitant]
  6. TYLENOL [Concomitant]
     Active Substance: ACETAMINOPHEN
  7. ASPIRIN. [Concomitant]
     Active Substance: ASPIRIN

REACTIONS (6)
  - Drug interaction [None]
  - Erythema [None]
  - Peripheral swelling [None]
  - Swelling face [None]
  - Rash [None]
  - Pain [None]

NARRATIVE: CASE EVENT DATE: 20180129
